FAERS Safety Report 8181314-9 (Version None)
Quarter: 2012Q1

REPORT INFORMATION
  Report Type: 
  Country: None (occurrence: None)
  Receive Date: 20120302
  Receipt Date: 20120229
  Transmission Date: 20120608
  Serious: Yes (Other)
  Sender: FDA-Public Use
  Company Number: US-PFIZER INC-2012054687

PATIENT
  Sex: Male
  Weight: 109 kg

DRUGS (13)
  1. LIPITOR [Suspect]
     Indication: BLOOD CHOLESTEROL INCREASED
     Dosage: 80 MG, 1X/DAY
     Route: 048
     Dates: start: 19970101
  2. NIACIN [Concomitant]
     Dosage: 500 MG, 1X/DAY
  3. FISH OIL [Concomitant]
     Dosage: 1000 MG, 1X/DAY
  4. PLAVIX [Concomitant]
     Dosage: 75 MG, 1X/DAY
  5. BENAZEPRIL [Concomitant]
     Dosage: 40 MG, 1X/DAY
  6. ACETYLSALICYLIC ACID [Concomitant]
     Dosage: 325 MG, 1X/DAY
  7. PENTOXIFYLLINE [Concomitant]
     Dosage: 400 MG, 1X/DAY
  8. SAW PALMETTO [Concomitant]
     Dosage: 60 MG, 1X/DAY
  9. AMLODIPINE [Concomitant]
     Dosage: 50 MG, 1X/DAY
  10. VITAMIN D [Concomitant]
     Dosage: 1000 MG, 1X/DAY
  11. ALLOPURINOL [Concomitant]
     Dosage: 300 MG, 1X/DAY
  12. FUROSEMIDE [Concomitant]
     Dosage: 80 MG, 1X/DAY
  13. TRIMETAZIDINE [Concomitant]
     Dosage: 12.5 MG, 1X/DAY

REACTIONS (1)
  - DIABETES MELLITUS [None]
